FAERS Safety Report 6322100-1 (Version None)
Quarter: 2009Q3

REPORT INFORMATION
  Report Type: 
  Country: None (occurrence: None)
  Receive Date: 20090824
  Receipt Date: 20090817
  Transmission Date: 20100115
  Serious: Yes (Other)
  Sender: FDA-Public Use
  Company Number: US-JNJFOC-20090706668

PATIENT
  Sex: Female

DRUGS (1)
  1. REMICADE [Suspect]
     Indication: CROHN'S DISEASE
     Dosage: EVERY 6 TO 8 WEEKS
     Route: 042

REACTIONS (1)
  - NON-SMALL CELL LUNG CANCER [None]
